FAERS Safety Report 5474217-1 (Version None)
Quarter: 2007Q3

REPORT INFORMATION
  Report Type: 
  Country: None (occurrence: None)
  Receive Date: 20070928
  Receipt Date: 20070928
  Transmission Date: 20080115
  Serious: No
  Sender: FDA-Public Use
  Company Number: None

PATIENT
  Age: 38 Year
  Sex: Male

DRUGS (8)
  1. VIRAMUNE [Suspect]
     Dosage: 400 MG/DAY
     Dates: start: 20050903, end: 20050919
  2. LAMIVUDINE [Concomitant]
  3. TENOFOVIR [Concomitant]
  4. ACYCLOVIR [Concomitant]
  5. VICODIN [Concomitant]
  6. ZOLOFT [Concomitant]
  7. BACTRIM [Concomitant]
  8. CLINDAMYCIN HCL [Concomitant]

REACTIONS (6)
  - CONDITION AGGRAVATED [None]
  - HEPATITIS B [None]
  - HEPATOMEGALY [None]
  - HEPATOTOXICITY [None]
  - INTERNATIONAL NORMALISED RATIO INCREASED [None]
  - LIVER INJURY [None]
